FAERS Safety Report 5334192-7 (Version None)
Quarter: 2007Q2

REPORT INFORMATION
  Report Type: 
  Country: None (occurrence: None)
  Receive Date: 20070510
  Receipt Date: 20070426
  Transmission Date: 20071010
  Serious: Yes (Other)
  Sender: FDA-Public Use
  Company Number: WSDF_00566

PATIENT
  Age: 26 Year
  Sex: Female
  Weight: 75.2971 kg

DRUGS (1)
  1. WINRHO SDF [Suspect]
     Indication: ISOIMMUNE HAEMOLYTIC DISEASE
     Dosage: 300 MCG ONCE
     Dates: start: 20060323, end: 20060323

REACTIONS (2)
  - DRUG EXPOSURE DURING PREGNANCY [None]
  - RHESUS ANTIBODIES POSITIVE [None]
